FAERS Safety Report 21522246 (Version 5)
Quarter: 2022Q4

REPORT INFORMATION
  Report Type: Report from Study
  Country: ES (occurrence: ES)
  Receive Date: 20221028
  Receipt Date: 20221123
  Transmission Date: 20230113
  Serious: Yes (Other)
  Sender: FDA-Public Use
  Company Number: ES-ABBVIE-4177020

PATIENT
  Age: 67 Year
  Sex: Female

DRUGS (3)
  1. CARBIDOPA\LEVODOPA [Suspect]
     Active Substance: CARBIDOPA\LEVODOPA
     Indication: Parkinson^s disease
     Route: 050
     Dates: start: 20221017, end: 20221028
  2. CARBIDOPA\LEVODOPA [Suspect]
     Active Substance: CARBIDOPA\LEVODOPA
     Dosage: INCREASE CONTINUOUS DOSE 0.2ML/H
     Route: 050
     Dates: start: 20221028, end: 202211
  3. CARBIDOPA\LEVODOPA [Suspect]
     Active Substance: CARBIDOPA\LEVODOPA
     Dosage: INCREASE CONTINUOUS DOSE BY 0.1ML/H AND MORNING DOSE BY 1ML MORE
     Route: 050
     Dates: start: 202211

REACTIONS (10)
  - Gait disturbance [Recovered/Resolved]
  - Tremor [Recovered/Resolved]
  - Unevaluable event [Unknown]
  - Flatulence [Unknown]
  - Discomfort [Unknown]
  - Swelling [Unknown]
  - Obstruction [Not Recovered/Not Resolved]
  - Therapeutic product effect incomplete [Recovering/Resolving]
  - Feeling abnormal [Unknown]
  - Infection [Recovering/Resolving]

NARRATIVE: CASE EVENT DATE: 20221022
